FAERS Safety Report 18367736 (Version 1)
Quarter: 2020Q4

REPORT INFORMATION
  Report Type: Report from Study
  Country: AR (occurrence: AR)
  Receive Date: 20201009
  Receipt Date: 20201009
  Transmission Date: 20210114
  Serious: Yes (Other)
  Sender: FDA-Public Use
  Company Number: NVSC2020AR165197

PATIENT
  Age: 65 Year
  Sex: Male

DRUGS (1)
  1. COSENTYX [Suspect]
     Active Substance: SECUKINUMAB
     Indication: PSORIASIS
     Dosage: 300 MG, QMO
     Route: 058
     Dates: start: 20190701

REACTIONS (7)
  - Product dose omission issue [Unknown]
  - Pyrexia [Recovering/Resolving]
  - Coronavirus test positive [Unknown]
  - Psoriasis [Not Recovered/Not Resolved]
  - Inappropriate schedule of product administration [Unknown]
  - Headache [Recovering/Resolving]
  - Asymptomatic COVID-19 [Recovering/Resolving]

NARRATIVE: CASE EVENT DATE: 20200927
